FAERS Safety Report 4847120-5 (Version None)
Quarter: 2005Q4

REPORT INFORMATION
  Report Type: 
  Country: None (occurrence: None)
  Receive Date: 20051205
  Receipt Date: 20051205
  Transmission Date: 20060501
  Serious: Yes (Other)
  Sender: FDA-Public Use
  Company Number: None

PATIENT
  Age: 58 Year
  Sex: Female
  Weight: 90.5 kg

DRUGS (8)
  1. ZOLEDRONIC ACID [Suspect]
     Indication: BREAST CANCER METASTATIC
     Dosage: 4 MG Q3 WEEK IV
     Route: 042
     Dates: start: 20050228, end: 20051114
  2. BEVACIZUMAB [Suspect]
     Indication: BREAST CANCER METASTATIC
     Dosage: 15 MG/KG Q3 W IV
     Route: 042
     Dates: start: 20050111, end: 20051110
  3. HYDROCHLOROTHIAZIDE [Concomitant]
  4. TOPROL-XL [Concomitant]
  5. LETRAZOLE [Concomitant]
  6. CALCIUM GLUCONATE [Concomitant]
  7. M.V.I. [Concomitant]
  8. PERCOCET [Concomitant]

REACTIONS (1)
  - OSTEONECROSIS [None]
